FAERS Safety Report 20061852 (Version 1)
Quarter: 2021Q4

REPORT INFORMATION
  Report Type: Other
  Country: SA (occurrence: None)
  Receive Date: 20211112
  Receipt Date: 20211112
  Transmission Date: 20220304
  Serious: Yes (Other)
  Sender: FDA-Public Use
  Company Number: SA-ROCHE-2952780

PATIENT

DRUGS (1)
  1. TOCILIZUMAB [Suspect]
     Active Substance: TOCILIZUMAB
     Indication: COVID-19
     Dosage: MEDIAN (Q1, Q3) DOSE OF TOCILIZUMAB ADMINISTERED PER DAY WAS 400 MG (400 MG, 600 MG).
     Route: 065

REACTIONS (5)
  - Enterobacter infection [Unknown]
  - Bacterial infection [Unknown]
  - Fungal infection [Unknown]
  - Infection [Unknown]
  - Off label use [Unknown]
